FAERS Safety Report 9706856 (Version 1)
Quarter: 2013Q4

REPORT INFORMATION
  Report Type: Report from Study
  Country: AT (occurrence: AT)
  Receive Date: 20131125
  Receipt Date: 20131125
  Transmission Date: 20140711
  Serious: Yes (Hospitalization)
  Sender: FDA-Public Use
  Company Number: AT-MPIJNJ-2013JNJ001065

PATIENT
  Sex: 0

DRUGS (4)
  1. VELCADE [Suspect]
     Indication: PLASMA CELL MYELOMA
     Dosage: UNK MG, UNK
     Route: 058
     Dates: start: 20131008, end: 20131105
  2. CYCLOPHOSPHAMIDE [Suspect]
     Indication: PLASMA CELL MYELOMA
     Dosage: 800 UNK, UNK
     Route: 042
     Dates: start: 20131008, end: 20131105
  3. DEXAMETHASONE [Suspect]
     Indication: PLASMA CELL MYELOMA
     Dosage: 40 MG, UNK
     Route: 048
     Dates: start: 20131008, end: 20131105
  4. ENOXAPARIN [Concomitant]
     Route: 058

REACTIONS (1)
  - Atrial tachycardia [Recovered/Resolved]
